FAERS Safety Report 6716990-8 (Version None)
Quarter: 2010Q2

REPORT INFORMATION
  Report Type: 
  Country: None (occurrence: None)
  Receive Date: 20100506
  Receipt Date: 20100506
  Transmission Date: 20101027
  Serious: Yes (Hospitalization, Disabling)
  Sender: FDA-Public Use
  Company Number: None

PATIENT
  Sex: Female
  Weight: 113.3993 kg

DRUGS (1)
  1. ADVAIR DISKUS 100/50 [Suspect]
     Dosage: ONE PUFF BID BID PO
     Route: 048
     Dates: start: 20090101

REACTIONS (6)
  - FALL [None]
  - FRACTURE NONUNION [None]
  - HIP FRACTURE [None]
  - PAIN [None]
  - PNEUMONIA [None]
  - REACTION TO DRUG EXCIPIENTS [None]
